FAERS Safety Report 4696489-3 (Version None)
Quarter: 2005Q2

REPORT INFORMATION
  Report Type: 
  Country: None (occurrence: None)
  Receive Date: 20050620
  Receipt Date: 20050606
  Transmission Date: 20051028
  Serious: Yes (Other)
  Sender: FDA-Public Use
  Company Number: 2005086311

PATIENT
  Sex: Male
  Weight: 133.3575 kg

DRUGS (4)
  1. VIAGRA [Suspect]
     Indication: ERECTILE DYSFUNCTION
     Dosage: (100 MG)
  2. ALL OTHER THERAPEUTIC PRODUCTS (ALL OTHER THERAPEUTIC PRODUCTS) [Concomitant]
  3. POTASSIUM (POTASSIUM) [Concomitant]
  4. ZANTAC [Concomitant]

REACTIONS (8)
  - CATARACT [None]
  - DRUG INEFFECTIVE [None]
  - HAEMATOCRIT INCREASED [None]
  - INTRAOCULAR PRESSURE INCREASED [None]
  - OCULAR VASCULAR DISORDER [None]
  - OPTIC NERVE DISORDER [None]
  - RED BLOOD CELL COUNT INCREASED [None]
  - TUNNEL VISION [None]
